FAERS Safety Report 11133210 (Version 3)
Quarter: 2016Q2

REPORT INFORMATION
  Report Type: Spontaneous
  Country: US (occurrence: US)
  Receive Date: 20150522
  Receipt Date: 20160512
  Transmission Date: 20160815
  Serious: Yes (Other)
  Sender: FDA-Public Use
  Company Number: US-PFIZER INC-2015113622

PATIENT
  Sex: Male

DRUGS (1)
  1. LYRICA [Suspect]
     Active Substance: PREGABALIN
     Dosage: 100 MG, 3X/DAY

REACTIONS (5)
  - Limb discomfort [Unknown]
  - Speech disorder [Unknown]
  - Arthropathy [Unknown]
  - Gait disturbance [Unknown]
  - Feeling abnormal [Unknown]
